FAERS Safety Report 17049146 (Version 2)
Quarter: 2020Q1

REPORT INFORMATION
  Report Type: Spontaneous
  Country: FR (occurrence: FR)
  Receive Date: 20191119
  Receipt Date: 20200113
  Transmission Date: 20200409
  Serious: Yes (Hospitalization, Other)
  Sender: FDA-Public Use
  Company Number: NVSC2019FR037794

PATIENT
  Age: 48 Year
  Sex: Female
  Weight: 52 kg

DRUGS (1)
  1. GILENYA [Suspect]
     Active Substance: FINGOLIMOD HYDROCHLORIDE
     Indication: MULTIPLE SCLEROSIS
     Dosage: 0.5 MG, QD
     Route: 048
     Dates: start: 20130722, end: 201810

REACTIONS (3)
  - Non-Hodgkin^s lymphoma [Recovering/Resolving]
  - Skin lesion [Unknown]
  - Lymphadenopathy mediastinal [Unknown]

NARRATIVE: CASE EVENT DATE: 201810
